FAERS Safety Report 6651956-8 (Version None)
Quarter: 2010Q1

REPORT INFORMATION
  Report Type: 
  Country: None (occurrence: None)
  Receive Date: 20100323
  Receipt Date: 20050414
  Transmission Date: 20100710
  Serious: Yes (Other)
  Sender: FDA-Public Use
  Company Number: 2009-3008

PATIENT
  Age: 73 Year
  Sex: Male

DRUGS (12)
  1. APO-GO (APOMORPHINE HYDROCHLORIDE) (APOMORPHINE HYDROCHLORIDE) [Suspect]
     Indication: PARKINSON'S DISEASE
     Dosage: 12 MG, AS REQUIRED); SUBCUTANEOUS, NOT REPORTED, SUBCUTANEOUS, 80 MG (80 MG, 1 IN 1 D), SUBCUTANEOUS
     Route: 058
     Dates: start: 19960101, end: 20010101
  2. APO-GO (APOMORPHINE HYDROCHLORIDE) (APOMORPHINE HYDROCHLORIDE) [Suspect]
     Indication: PARKINSON'S DISEASE
     Dosage: 12 MG, AS REQUIRED); SUBCUTANEOUS, NOT REPORTED, SUBCUTANEOUS, 80 MG (80 MG, 1 IN 1 D), SUBCUTANEOUS
     Route: 058
     Dates: start: 20010101, end: 20021001
  3. APO-GO (APOMORPHINE HYDROCHLORIDE) (APOMORPHINE HYDROCHLORIDE) [Suspect]
     Indication: PARKINSON'S DISEASE
     Dosage: 12 MG, AS REQUIRED); SUBCUTANEOUS, NOT REPORTED, SUBCUTANEOUS, 80 MG (80 MG, 1 IN 1 D), SUBCUTANEOUS
     Route: 058
     Dates: start: 20021001
  4. MADOPAR (MADOPAR) (BENSERAZIDE HYDROCHLORIDE, LEVODOPA) [Suspect]
     Indication: PARKINSON'S DISEASE
     Dosage: 125 MG, (125 MG, 1 IN 1 D), ORAL
     Route: 048
  5. SINEMET CR [Suspect]
     Indication: PARKINSON'S DISEASE
     Dosage: 500 MG (250 MG, 2 IN 1 D), ORAL
     Route: 048
  6. SINEMET [Suspect]
     Indication: PARKINSON'S DISEASE
     Dosage: 125 MG (125 MG, 1 IN 1 D), ORAL
     Route: 048
  7. PRAMIPEXOLE (PRAMIPEXOLE) (PRAMIPEXOLE) [Concomitant]
  8. TOLCAPONE (TOLCAPONE) (TOLCAPONE) [Concomitant]
  9. SELEGILINE (SELEGILINE) (SELEGILINE) [Concomitant]
  10. OXYBUTYNIN (OXYBUTYNIN) (OXYBUTYNIN) [Concomitant]
  11. DOTHIEPIN (DOSULEPINE) (DOSULEPIN) [Concomitant]
  12. PERGOLIDE (PERGOLIDE) (PERGOLIDE) [Concomitant]

REACTIONS (7)
  - COOMBS TEST POSITIVE [None]
  - HAEMOGLOBIN DECREASED [None]
  - HAEMOLYSIS [None]
  - MACROCYTOSIS [None]
  - MEAN CELL VOLUME INCREASED [None]
  - PLATELET COUNT DECREASED [None]
  - RETICULOCYTE COUNT INCREASED [None]
